FAERS Safety Report 25380241 (Version 2)
Quarter: 2025Q2

REPORT INFORMATION
  Report Type: Report from Study
  Country: US (occurrence: US)
  Receive Date: 20250530
  Receipt Date: 20250605
  Transmission Date: 20250716
  Serious: Yes (Hospitalization, Other)
  Sender: ABBVIE
  Company Number: US-ABBVIE-6303557

PATIENT
  Age: 54 Year
  Sex: Female

DRUGS (1)
  1. RINVOQ [Suspect]
     Active Substance: UPADACITINIB
     Indication: Dermatitis atopic
     Route: 048
     Dates: start: 20250301

REACTIONS (3)
  - Intervertebral disc protrusion [Unknown]
  - Joint range of motion decreased [Unknown]
  - Compression fracture [Unknown]

NARRATIVE: CASE EVENT DATE: 20250101
